FAERS Safety Report 9844093 (Version 2)
Quarter: 2014Q2

REPORT INFORMATION
  Report Type: Spontaneous
  Country: CA (occurrence: CA)
  Receive Date: 20140127
  Receipt Date: 20140507
  Transmission Date: 20141212
  Serious: Yes (Other)
  Sender: FDA-Public Use
  Company Number: CA-AMGEN-CANSP2014004585

PATIENT
  Age: 85 Year
  Sex: Male

DRUGS (15)
  1. ENBREL [Suspect]
     Indication: RHEUMATOID ARTHRITIS
     Dosage: 50 MG, QWK
     Route: 065
     Dates: start: 20130510
  2. SYNTHROID [Concomitant]
     Dosage: 0.1 MG, UNK
  3. IPRATROPIUM BROMIDE [Concomitant]
     Indication: RHINITIS
     Dosage: 0.6 %, UNK
  4. SPIRIVA [Concomitant]
     Dosage: 18 MUG, QD
  5. SYMBICORT [Concomitant]
     Dosage: 400 MG, BID (IN AM AND PM)
  6. SYMBICORT [Concomitant]
     Dosage: 200MCG 2 PUFFS TWICE DAILY
  7. SALBUTAMOL [Concomitant]
     Dosage: 100 MUG, 1TO 2 PUFFS EVERY 6 HOURS PRN
  8. FOLIC ACID [Concomitant]
     Dosage: UNK UNK, QD (EXCEPT ON THE OF METHOREXATE ADMINISTRATION)
  9. HYDROCHLOROTHIAZIDE [Concomitant]
     Dosage: UNK
  10. PREDNISONE [Concomitant]
     Dosage: 10MG DAILY DECREASING THE DOSE BY 0.5MG EVERY OTHER DAY WILL NOW BE TAKING 7.5MG DAILY FOR 5-6 WEEKS
  11. METHOTREXATE [Concomitant]
     Dosage: UNK
  12. MOMETASONE [Concomitant]
     Indication: RHINITIS ALLERGIC
     Dosage: 500 MUG, QD
  13. PATANOL [Concomitant]
     Dosage: 5 ML, AS NECESSARY
     Route: 047
  14. SALIN [Concomitant]
     Dosage: UNK
     Route: 045
  15. COVERSYL                           /00790702/ [Concomitant]
     Dosage: UNK

REACTIONS (4)
  - Atrial fibrillation [Not Recovered/Not Resolved]
  - Inflammation [Not Recovered/Not Resolved]
  - Pain in extremity [Not Recovered/Not Resolved]
  - Arthralgia [Not Recovered/Not Resolved]
